FAERS Safety Report 8576645 (Version 2)
Quarter: 2014Q1

REPORT INFORMATION
  Report Type: Spontaneous
  Country: JP (occurrence: JP)
  Receive Date: 20120523
  Receipt Date: 20140106
  Transmission Date: 20141002
  Serious: Yes (Hospitalization, Other)
  Sender: FDA-Public Use
  Company Number: PHHY2012JP043708

PATIENT
  Age: 77 Year
  Sex: Male

DRUGS (8)
  1. ENALAPRIL MALEATE [Suspect]
     Route: 048
  2. CYPROHEPTADINE [Suspect]
     Route: 048
  3. PURSENNIDE [Suspect]
     Route: 048
  4. AMLODIPINE [Concomitant]
     Route: 048
  5. DOXAZOSIN [Concomitant]
     Route: 048
  6. SODIUM GUALENATE HYDRATE [Concomitant]
     Route: 048
  7. RANITIDINE HYDROCHLORIDE [Concomitant]
     Route: 048
  8. L-GLUTAMINE [Concomitant]
     Route: 048

REACTIONS (2)
  - Macule [Recovered/Resolved]
  - Purpura [Recovered/Resolved]
